FAERS Safety Report 15959655 (Version 2)
Quarter: 2019Q1

REPORT INFORMATION
  Report Type: Report from Study
  Country: US (occurrence: US)
  Receive Date: 20190214
  Receipt Date: 20190214
  Transmission Date: 20190417
  Serious: Yes (Other)
  Sender: FDA-Public Use
  Company Number: PHHO2019US001602

PATIENT
  Age: 64 Year
  Sex: Female

DRUGS (25)
  1. EVEROLIMUS. [Suspect]
     Active Substance: EVEROLIMUS
     Indication: PRODUCT USED FOR UNKNOWN INDICATION
     Route: 065
  2. OXYCODONE [Concomitant]
     Active Substance: OXYCODONE
     Indication: PRODUCT USED FOR UNKNOWN INDICATION
     Dosage: 10 MG, Q4H
     Route: 065
  3. DILAUDID [Concomitant]
     Active Substance: HYDROMORPHONE HYDROCHLORIDE
     Indication: PRODUCT USED FOR UNKNOWN INDICATION
     Dosage: 2 MG, Q4H
     Route: 065
     Dates: end: 20140406
  4. AMLODIPINE [Concomitant]
     Active Substance: AMLODIPINE BESYLATE
     Indication: PRODUCT USED FOR UNKNOWN INDICATION
     Dosage: (DAILY)
     Route: 048
  5. FOSAMAX [Concomitant]
     Active Substance: ALENDRONATE SODIUM
     Indication: PRODUCT USED FOR UNKNOWN INDICATION
     Route: 065
  6. CAPECITABINE. [Concomitant]
     Active Substance: CAPECITABINE
     Dosage: 2 DF, BID (500 MG FOR 2 WEEKS, 56 TABS)
     Route: 048
  7. IBUPROFEN. [Concomitant]
     Active Substance: IBUPROFEN
     Indication: PRODUCT USED FOR UNKNOWN INDICATION
     Route: 065
  8. CANNABIDIOL [Concomitant]
     Active Substance: CANNABIDIOL
     Indication: PRODUCT USED FOR UNKNOWN INDICATION
     Route: 065
  9. DILAUDID [Concomitant]
     Active Substance: HYDROMORPHONE HYDROCHLORIDE
     Dosage: 2 MG, (INTERMITTENTLY)
     Route: 065
  10. CAPECITABINE. [Concomitant]
     Active Substance: CAPECITABINE
     Indication: PRODUCT USED FOR UNKNOWN INDICATION
     Dosage: 150 MG, BID (28 TABS FOR 2 WEEKS)
     Route: 048
     Dates: start: 20170816
  11. FASLODEX [Concomitant]
     Active Substance: FULVESTRANT
     Indication: PRODUCT USED FOR UNKNOWN INDICATION
     Dosage: 10 ML, QMO
     Route: 030
     Dates: start: 20170214
  12. VITAMIN D [Concomitant]
     Active Substance: CHOLECALCIFEROL
     Indication: PRODUCT USED FOR UNKNOWN INDICATION
     Route: 065
  13. DENOSUMAB [Concomitant]
     Active Substance: DENOSUMAB
     Dosage: 1.7 ML, QMO
     Route: 058
     Dates: start: 2016
  14. XGEVA [Concomitant]
     Active Substance: DENOSUMAB
     Dosage: 3.4 ML, Q4W
     Route: 058
  15. LEVAQUIN [Concomitant]
     Active Substance: LEVOFLOXACIN
     Indication: PRODUCT USED FOR UNKNOWN INDICATION
     Dosage: (FOR A WEEK)
     Route: 065
  16. LETROZOLE. [Suspect]
     Active Substance: LETROZOLE
     Indication: PRODUCT USED FOR UNKNOWN INDICATION
     Dosage: UNK
     Route: 065
     Dates: start: 20140315, end: 20160503
  17. IBRANCE [Suspect]
     Active Substance: PALBOCICLIB
     Indication: PRODUCT USED FOR UNKNOWN INDICATION
     Dosage: 125 MG, (28 DAYS)
     Route: 065
     Dates: start: 20160512
  18. FULVESTRANT. [Concomitant]
     Active Substance: FULVESTRANT
     Indication: PRODUCT USED FOR UNKNOWN INDICATION
     Dosage: UNK
     Route: 065
     Dates: start: 20160512
  19. XELODA [Concomitant]
     Active Substance: CAPECITABINE
     Indication: PRODUCT USED FOR UNKNOWN INDICATION
     Dosage: 2 DF, BID (2 WEEKS WITH A FULL GLASS OF WATER, 56 EA, 3 REFILLS)
     Route: 048
  20. EXEMESTANE. [Concomitant]
     Active Substance: EXEMESTANE
     Indication: PRODUCT USED FOR UNKNOWN INDICATION
     Route: 065
  21. CLONAZEPAM. [Suspect]
     Active Substance: CLONAZEPAM
     Indication: PRODUCT USED FOR UNKNOWN INDICATION
     Route: 065
  22. DENOSUMAB [Concomitant]
     Active Substance: DENOSUMAB
     Indication: PRODUCT USED FOR UNKNOWN INDICATION
     Dosage: 1.7 ML, Q4W
     Route: 058
     Dates: start: 201403
  23. XGEVA [Concomitant]
     Active Substance: DENOSUMAB
     Indication: PRODUCT USED FOR UNKNOWN INDICATION
     Dosage: 1.7 ML, Q4W
     Route: 058
  24. DECADRON [Concomitant]
     Active Substance: DEXAMETHASONE
     Indication: PRODUCT USED FOR UNKNOWN INDICATION
     Dosage: 2 MG, QD
     Route: 065
     Dates: start: 20140306
  25. DENOSUMAB [Concomitant]
     Active Substance: DENOSUMAB
     Dosage: 1.7 ML, Q3MO
     Route: 058
     Dates: start: 2015

REACTIONS (26)
  - Breast mass [Unknown]
  - Neutrophil count decreased [Unknown]
  - Cough [Recovering/Resolving]
  - Nasal congestion [Unknown]
  - Spinal pain [Unknown]
  - Fatigue [Unknown]
  - Back pain [Unknown]
  - Musculoskeletal pain [Unknown]
  - Pneumonitis [Unknown]
  - Dyspnoea [Recovering/Resolving]
  - Breast cancer female [Unknown]
  - Metastases to bone [Unknown]
  - Concomitant disease aggravated [Unknown]
  - Pain [Unknown]
  - Metastases to liver [Unknown]
  - Osteopenia [Unknown]
  - Aortic valve stenosis [Unknown]
  - Oral pain [Unknown]
  - Blood creatinine increased [Unknown]
  - Constipation [Unknown]
  - Thyroid mass [Unknown]
  - Pyrexia [Recovered/Resolved]
  - Cholangiocarcinoma [Unknown]
  - Neck pain [Unknown]
  - Fluid overload [Unknown]
  - Dysgeusia [Not Recovered/Not Resolved]

NARRATIVE: CASE EVENT DATE: 201202
